FAERS Safety Report 10079293 (Version 2)
Quarter: 2014Q2

REPORT INFORMATION
  Report Type: Spontaneous
  Country: US (occurrence: US)
  Receive Date: 20140415
  Receipt Date: 20140415
  Transmission Date: 20141212
  Serious: Yes (Hospitalization)
  Sender: FDA-Public Use
  Company Number: US-BAXTER-2014BAX017623

PATIENT
  Age: 63 Year
  Sex: Female

DRUGS (2)
  1. DIANEAL LOW CALCIUM [Suspect]
     Indication: RENAL FAILURE CHRONIC
     Route: 033
     Dates: start: 201201, end: 20140226
  2. DIANEAL LOW CALCIUM [Suspect]
     Dosage: LOW DOSE
     Route: 033
     Dates: start: 20140329

REACTIONS (1)
  - Kidney enlargement [Recovering/Resolving]
